FAERS Safety Report 5465218-8 (Version None)
Quarter: 2007Q3

REPORT INFORMATION
  Report Type: 
  Country: None (occurrence: None)
  Receive Date: 20070924
  Receipt Date: 20070911
  Transmission Date: 20080115
  Serious: Yes (Hospitalization)
  Sender: FDA-Public Use
  Company Number: PHHO2007US14219

PATIENT
  Age: 46 Year
  Sex: Female
  Weight: 65.5 kg

DRUGS (2)
  1. MYCOPHENOLATE MOFETIL [Suspect]
     Indication: HEART TRANSPLANT
     Dosage: 1.25 MG, BID
     Route: 048
     Dates: start: 20061021
  2. NEORAL [Suspect]
     Indication: HEART TRANSPLANT
     Dosage: 100 MG, BID
     Route: 048
     Dates: start: 20070717

REACTIONS (2)
  - HEADACHE [None]
  - HYPERTENSION [None]
